FAERS Safety Report 7314212-0 (Version None)
Quarter: 2011Q1

REPORT INFORMATION
  Report Type: 
  Country: None (occurrence: None)
  Receive Date: 20110225
  Receipt Date: 20100625
  Transmission Date: 20110831
  Serious: No
  Sender: FDA-Public Use
  Company Number: US-MYLANLABS-2010S1010295

PATIENT
  Age: 49 Year
  Sex: Female

DRUGS (3)
  1. CLARAVIS [Suspect]
  2. CLARITIN-D [Concomitant]
  3. AMNESTEEM [Suspect]
     Indication: ACNE
     Route: 048

REACTIONS (1)
  - MONOCLONAL GAMMOPATHY [None]
